FAERS Safety Report 23843559 (Version 1)
Quarter: 2024Q2

REPORT INFORMATION
  Report Type: Spontaneous
  Country: US (occurrence: None)
  Receive Date: 20240510
  Receipt Date: 20240510
  Transmission Date: 20240716
  Serious: Yes (Hospitalization)
  Sender: FDA-Public Use
  Company Number: None

PATIENT
  Age: 43 Year
  Sex: Male
  Weight: 105 kg

DRUGS (4)
  1. PRAZOSIN HYDROCHLORIDE [Suspect]
     Active Substance: PRAZOSIN HYDROCHLORIDE
     Indication: Product used for unknown indication
     Dates: start: 20220705, end: 20220706
  2. AMLODIPINE MESYLATE\OLMESARTAN MEDOXOMIL [Suspect]
     Active Substance: AMLODIPINE MESYLATE\OLMESARTAN MEDOXOMIL
  3. TELMISARTAN [Suspect]
     Active Substance: TELMISARTAN
  4. PROPRANOLOL [Suspect]
     Active Substance: PROPRANOLOL HYDROCHLORIDE

REACTIONS (3)
  - Dizziness [None]
  - Hypotension [None]
  - Seizure [None]

NARRATIVE: CASE EVENT DATE: 20220706
